FAERS Safety Report 8887723 (Version 1)
Quarter: 2012Q4

REPORT INFORMATION
  Report Type: 
  Country: GR (occurrence: GR)
  Receive Date: 20121106
  Receipt Date: 20121106
  Transmission Date: 20130627
  Serious: Yes (Other)
  Sender: FDA-Public Use
  Company Number: GR-AMGEN-GRCSP2011068502

PATIENT
  Sex: Male

DRUGS (2)
  1. ENBREL [Suspect]
     Indication: PSORIASIS
     Dosage: 50 mg, 2x/week
     Dates: end: 20111214
  2. ENBREL [Suspect]
     Dosage: 50 mg, 2x/week
     Dates: start: 20111217

REACTIONS (2)
  - Breath sounds abnormal [Unknown]
  - Psoriatic arthropathy [Not Recovered/Not Resolved]
